FAERS Safety Report 16020632 (Version 3)
Quarter: 2024Q1

REPORT INFORMATION
  Report Type: Spontaneous
  Country: CA (occurrence: CA)
  Receive Date: 20190301
  Receipt Date: 20240112
  Transmission Date: 20240410
  Serious: Yes (Other)
  Sender: FDA-Public Use
  Company Number: CA-AUROBINDO-AUR-APL-2019-010541

PATIENT
  Age: 49 Year
  Sex: Female

DRUGS (10)
  1. CEFUROXIME [Suspect]
     Active Substance: CEFUROXIME
     Indication: Product used for unknown indication
     Dosage: UNK
     Route: 065
  2. MOXIFLOXACIN [Suspect]
     Active Substance: MOXIFLOXACIN
     Indication: Product used for unknown indication
     Dosage: UNK
     Route: 065
  3. MOXIFLOXACIN [Suspect]
     Active Substance: MOXIFLOXACIN
     Dosage: UNK
     Route: 065
  4. RAMIPRIL [Suspect]
     Active Substance: RAMIPRIL
     Indication: Product used for unknown indication
     Dosage: UNK
     Route: 065
  5. BIAXIN [Suspect]
     Active Substance: CLARITHROMYCIN
     Indication: Product used for unknown indication
     Dosage: UNK
     Route: 065
  6. CEPHALEXIN [Suspect]
     Active Substance: CEPHALEXIN
     Indication: Product used for unknown indication
     Dosage: UNK
     Route: 065
  7. CLOXACILLIN [Suspect]
     Active Substance: CLOXACILLIN
     Indication: Product used for unknown indication
     Dosage: UNK
     Route: 065
  8. ERYTHROMYCIN [Suspect]
     Active Substance: ERYTHROMYCIN
     Indication: Product used for unknown indication
     Dosage: UNK
     Route: 065
  9. NAPROXEN [Suspect]
     Active Substance: NAPROXEN
     Indication: Product used for unknown indication
     Dosage: UNK
     Route: 065
  10. ORENCIA [Suspect]
     Active Substance: ABATACEPT
     Indication: Product used for unknown indication
     Dosage: UNK
     Route: 065

REACTIONS (7)
  - Pharyngeal oedema [Unknown]
  - Cough [Unknown]
  - Anaphylactic reaction [Unknown]
  - Hypersensitivity [Unknown]
  - Urticaria [Unknown]
  - Rash [Unknown]
  - Drug ineffective [Unknown]
